FAERS Safety Report 8560300-0 (Version None)
Quarter: 2012Q3

REPORT INFORMATION
  Report Type: 
  Country: None (occurrence: None)
  Receive Date: 20120802
  Receipt Date: 20120720
  Transmission Date: 20120928
  Serious: Yes (Hospitalization, Other)
  Sender: FDA-Public Use
  Company Number: US-ELI_LILLY_AND_COMPANY-US201207006793

PATIENT
  Sex: Female

DRUGS (6)
  1. ILETIN [Suspect]
     Indication: DIABETES MELLITUS
     Dosage: UNK, UNKNOWN
  2. HUMULIN N [Suspect]
     Indication: DIABETES MELLITUS
     Dosage: 70 U, QD
  3. HUMULIN N [Suspect]
     Dosage: 245 U, QD
     Dates: start: 20120719, end: 20120719
  4. HUMULIN R [Suspect]
     Indication: DIABETES MELLITUS
     Dosage: 15 U, QD
  5. HUMULIN R [Suspect]
     Dosage: UNK, PRN
  6. HUMULIN N [Suspect]
     Dosage: 220 U, QD
     Dates: start: 20120718, end: 20120718

REACTIONS (8)
  - LOSS OF CONSCIOUSNESS [None]
  - BREAST CANCER [None]
  - RENAL FAILURE [None]
  - EXPIRED DRUG ADMINISTERED [None]
  - DRUG INEFFECTIVE [None]
  - BLOOD GLUCOSE INCREASED [None]
  - BLINDNESS UNILATERAL [None]
  - RETINAL HAEMORRHAGE [None]
